FAERS Safety Report 8068044-9 (Version None)
Quarter: 2012Q1

REPORT INFORMATION
  Report Type: 
  Country: None (occurrence: None)
  Receive Date: 20120124
  Receipt Date: 20110916
  Transmission Date: 20120608
  Serious: No
  Sender: FDA-Public Use
  Company Number: US-AMGEN-USASP2011047942

PATIENT
  Age: 65 Year
  Sex: Female

DRUGS (5)
  1. FISH OIL [Concomitant]
  2. BIOTIN [Concomitant]
  3. PROLIA [Suspect]
     Indication: OSTEOPENIA
     Dosage: 60 MG, Q6MO
     Dates: start: 20101001
  4. VITAMIN D [Concomitant]
     Dosage: 1 IU, QD
  5. CALCIUM [Concomitant]
     Dosage: UNK

REACTIONS (2)
  - RASH VESICULAR [None]
  - RASH PRURITIC [None]
